FAERS Safety Report 20405308 (Version 1)
Quarter: 2022Q1

REPORT INFORMATION
  Report Type: Spontaneous
  Country: US (occurrence: None)
  Receive Date: 20220128
  Receipt Date: 20220128
  Transmission Date: 20220424
  Serious: Yes (Hospitalization, Other)
  Sender: FDA-Public Use
  Company Number: None

PATIENT
  Age: 36 Year
  Sex: Female
  Weight: 60.75 kg

DRUGS (1)
  1. XARELTO [Suspect]
     Active Substance: RIVAROXABAN
     Indication: Atrial flutter
     Dosage: FREQUENCY : DAILY;?
     Route: 048
     Dates: start: 20201201, end: 20210803

REACTIONS (5)
  - Heavy menstrual bleeding [None]
  - Heavy menstrual bleeding [None]
  - Haemoglobin decreased [None]
  - Transfusion [None]
  - Stress [None]

NARRATIVE: CASE EVENT DATE: 20210209
